FAERS Safety Report 4953018-4 (Version None)
Quarter: 2006Q1

REPORT INFORMATION
  Report Type: 
  Country: None (occurrence: None)
  Receive Date: 20060324
  Receipt Date: 20060227
  Transmission Date: 20060701
  Serious: Yes (Death, Hospitalization)
  Sender: FDA-Public Use
  Company Number: BE-GLAXOSMITHKLINE-B0414567A

PATIENT
  Age: 82 Year
  Sex: Male
  Weight: 63 kg

DRUGS (9)
  1. SEROXAT [Suspect]
     Indication: DEPRESSION
     Dosage: 15MG PER DAY
     Route: 048
     Dates: start: 20040116
  2. ASAFLOW [Suspect]
     Dosage: 80MG PER DAY
     Dates: start: 20031208
  3. SYMBICORT [Concomitant]
     Indication: ASTHMA
     Dosage: 2U TWICE PER DAY
     Dates: start: 20020101
  4. FORMOTEROL [Concomitant]
     Indication: ASTHMA
  5. AMLOR [Concomitant]
     Indication: HYPERTENSION
     Dosage: 5MG PER DAY
     Route: 048
     Dates: start: 20041222
  6. IRBESARTAN [Concomitant]
  7. HYDROCHLOROTHIAZIDE [Concomitant]
  8. MOLSIDOMINE [Concomitant]
     Dosage: 16MG PER DAY
     Dates: start: 20031208
  9. ARICEPT [Concomitant]
     Indication: DEMENTIA
     Dosage: 5MG PER DAY
     Route: 048
     Dates: start: 20041222

REACTIONS (2)
  - GASTRIC HAEMORRHAGE [None]
  - GASTROINTESTINAL HAEMORRHAGE [None]
